FAERS Safety Report 10871110 (Version 2)
Quarter: 2015Q1

REPORT INFORMATION
  Report Type: Spontaneous
  Country: RU (occurrence: RU)
  Receive Date: 20150226
  Receipt Date: 20150305
  Transmission Date: 20150721
  Serious: Yes (Other)
  Sender: FDA-Public Use
  Company Number: RU-EISAI MEDICAL RESEARCH-EC-2015-004183

PATIENT
  Age: 9 Year
  Sex: Male

DRUGS (4)
  1. FINLEPSIN [Concomitant]
     Active Substance: CARBAMAZEPINE
  2. TOPAMAX [Concomitant]
     Active Substance: TOPIRAMATE
  3. FYCOMPA [Suspect]
     Active Substance: PERAMPANEL
     Indication: PARTIAL SEIZURES
     Route: 048
     Dates: start: 20150216, end: 20150216
  4. FYCOMPA [Suspect]
     Active Substance: PERAMPANEL
     Route: 048
     Dates: start: 20150218

REACTIONS (2)
  - Seizure [Recovered/Resolved]
  - Off label use [Recovered/Resolved]

NARRATIVE: CASE EVENT DATE: 20150217
